FAERS Safety Report 5247410-0 (Version None)
Quarter: 2007Q1

REPORT INFORMATION
  Report Type: 
  Country: None (occurrence: None)
  Receive Date: 20070223
  Receipt Date: 20070223
  Transmission Date: 20070707
  Serious: Yes (Other)
  Sender: FDA-Public Use
  Company Number: None

PATIENT
  Age: 35 Year
  Sex: Female
  Weight: 90.7194 kg

DRUGS (5)
  1. PHENTERMINE [Suspect]
     Indication: WEIGHT CONTROL
     Dosage: 1 PILL - 37.5MG PER DAY PO
     Route: 048
     Dates: start: 20070126, end: 20070221
  2. ALLEGRA [Concomitant]
  3. CELEBREX [Concomitant]
  4. MECLIZINE [Concomitant]
  5. JANUVIA [Concomitant]

REACTIONS (9)
  - BLOOD PRESSURE FLUCTUATION [None]
  - BLOOD PRESSURE IMMEASURABLE [None]
  - DIZZINESS [None]
  - EYE DISORDER [None]
  - FEELING ABNORMAL [None]
  - HEART RATE ABNORMAL [None]
  - HYPERTENSION [None]
  - IMPAIRED DRIVING ABILITY [None]
  - VERTIGO [None]
